FAERS Safety Report 11597950 (Version 1)
Quarter: 2015Q4

REPORT INFORMATION
  Report Type: Spontaneous
  Country: US (occurrence: US)
  Receive Date: 20151006
  Receipt Date: 20151006
  Transmission Date: 20160304
  Serious: No
  Sender: FDA-Public Use
  Company Number: US-ROCHE-1533049

PATIENT
  Age: 69 Year
  Sex: Male

DRUGS (12)
  1. OMEPRAZOLE. [Concomitant]
     Active Substance: OMEPRAZOLE
     Route: 065
     Dates: start: 20141102
  2. GEMFIBROZIL. [Concomitant]
     Active Substance: GEMFIBROZIL
     Route: 065
     Dates: start: 20140609
  3. ADCIRCA [Concomitant]
     Active Substance: TADALAFIL
     Route: 065
     Dates: start: 20140402
  4. ERIVEDGE [Suspect]
     Active Substance: VISMODEGIB
     Indication: SKIN CANCER
     Route: 048
     Dates: start: 20141113
  5. HYDROCHLOROTHIAZIDE. [Concomitant]
     Active Substance: HYDROCHLOROTHIAZIDE
     Dosage: QUANTITY: 90
     Route: 065
     Dates: start: 20140609
  6. ACITRETIN. [Concomitant]
     Active Substance: ACITRETIN
     Route: 065
  7. OMEPRAZOLE. [Concomitant]
     Active Substance: OMEPRAZOLE
     Route: 065
  8. METOPROLOL SUCCINATE. [Concomitant]
     Active Substance: METOPROLOL SUCCINATE
     Dosage: ENTERIC COATED?QUANTITY: 90
     Route: 065
     Dates: start: 20140730
  9. METOPROLOL SUCCINATE. [Concomitant]
     Active Substance: METOPROLOL SUCCINATE
     Dosage: ENTERIC COATED?TOTAL QUANTITY:30
     Route: 065
  10. ADCIRCA [Concomitant]
     Active Substance: TADALAFIL
     Route: 065
  11. ADCIRCA [Concomitant]
     Active Substance: TADALAFIL
     Route: 065
  12. CIALIS [Concomitant]
     Active Substance: TADALAFIL
     Route: 065

REACTIONS (1)
  - Muscle spasms [Not Recovered/Not Resolved]

NARRATIVE: CASE EVENT DATE: 20141113
